FAERS Safety Report 6956344-2 (Version None)
Quarter: 2010Q3

REPORT INFORMATION
  Report Type: 
  Country: None (occurrence: None)
  Receive Date: 20100830
  Receipt Date: 20100825
  Transmission Date: 20110219
  Serious: Yes (Hospitalization)
  Sender: FDA-Public Use
  Company Number: A0861554A

PATIENT
  Sex: Female

DRUGS (4)
  1. AVANDIA [Suspect]
     Dates: start: 20070218, end: 20090701
  2. GLIMEPIRIDE [Concomitant]
  3. TOPROL-XL [Concomitant]
  4. LOTREL [Concomitant]

REACTIONS (3)
  - CHEST PAIN [None]
  - MYOCARDIAL INFARCTION [None]
  - PAIN [None]
